FAERS Safety Report 11689448 (Version 2)
Quarter: 2017Q1

REPORT INFORMATION
  Report Type: Spontaneous
  Country: US (occurrence: US)
  Receive Date: 20151102
  Receipt Date: 20170112
  Transmission Date: 20170428
  Serious: Yes (Other)
  Sender: FDA-Public Use
  Company Number: US-ELI_LILLY_AND_COMPANY-US201510006671

PATIENT
  Sex: Male

DRUGS (4)
  1. CYMBALTA [Suspect]
     Active Substance: DULOXETINE HYDROCHLORIDE
     Indication: DEPRESSION
     Dosage: 60 MG, QD
     Route: 048
  2. CYMBALTA [Suspect]
     Active Substance: DULOXETINE HYDROCHLORIDE
     Indication: PAIN
     Dosage: 30 MG, UNKNOWN
     Route: 065
     Dates: start: 20121203
  3. CYMBALTA [Suspect]
     Active Substance: DULOXETINE HYDROCHLORIDE
     Dosage: 30 MG, QD
     Route: 048
     Dates: start: 20131212, end: 20131225
  4. CYMBALTA [Suspect]
     Active Substance: DULOXETINE HYDROCHLORIDE
     Dosage: 30 MG, QOD
     Route: 048
     Dates: start: 20131226, end: 20140108

REACTIONS (18)
  - Drug withdrawal syndrome [Unknown]
  - Diarrhoea [Unknown]
  - Tremor [Unknown]
  - Confusional state [Unknown]
  - Dizziness [Unknown]
  - Paraesthesia [Unknown]
  - Vertigo [Unknown]
  - Insomnia [Unknown]
  - Mood swings [Unknown]
  - Nausea [Unknown]
  - Affect lability [Unknown]
  - Irritability [Unknown]
  - Dysphoria [Unknown]
  - Agitation [Unknown]
  - Anxiety [Unknown]
  - Sleep disorder [Unknown]
  - Sensory disturbance [Unknown]
  - Fatigue [Unknown]
